FAERS Safety Report 9166823 (Version 1)
Quarter: 2012Q4

REPORT INFORMATION
  Report Type: 
  Country: US (occurrence: US)
  Receive Date: 20121102
  Receipt Date: 20121102
  Transmission Date: 20130627
  Serious: Yes (Other)
  Sender: FDA-Public Use
  Company Number: US-RB-046245-12

PATIENT
  Age: 47 Year
  Sex: Male

DRUGS (1)
  1. SUBOXONE FILM [Suspect]
     Indication: DRUG DEPENDENCE
     Dosage: 1 - 2.5 mg daily
     Route: 060
     Dates: start: 2011

REACTIONS (3)
  - Wrong technique in drug usage process [Not Recovered/Not Resolved]
  - Depression [Not Recovered/Not Resolved]
  - Homicidal ideation [Not Recovered/Not Resolved]
